FAERS Safety Report 17776214 (Version 1)
Quarter: 2020Q2

REPORT INFORMATION
  Report Type: Spontaneous
  Country: US (occurrence: US)
  Receive Date: 20200513
  Receipt Date: 20200513
  Transmission Date: 20200714
  Serious: No
  Sender: FDA-Public Use
  Company Number: US-TEVA-2020-US-1232387

PATIENT
  Sex: Male

DRUGS (2)
  1. QVAR REDIHALER [Suspect]
     Active Substance: BECLOMETHASONE DIPROPIONATE
     Indication: ASTHMA
     Route: 055
  2. UNSPECIFIED ALBUTEROL [Concomitant]

REACTIONS (3)
  - Fatigue [Recovering/Resolving]
  - Sinusitis [Unknown]
  - Viral infection [Not Recovered/Not Resolved]
